FAERS Safety Report 9772974 (Version 3)
Quarter: 2014Q1

REPORT INFORMATION
  Report Type: Spontaneous
  Country: FR (occurrence: FR)
  Receive Date: 20131219
  Receipt Date: 20140121
  Transmission Date: 20141002
  Serious: Yes (Hospitalization)
  Sender: FDA-Public Use
  Company Number: FR-PFIZER INC-2013360294

PATIENT
  Age: 77 Year
  Sex: Female

DRUGS (11)
  1. ZOLOFT [Suspect]
     Dosage: 50 MG, 2X/DAY
     Route: 048
  2. PREVISCAN [Suspect]
     Dosage: ALTERNATION OF ONE QUARTER OF TABLET PER DAY OR HALF A TABLET THE OTHER DAY
     Route: 048
     Dates: start: 20131009, end: 20131010
  3. PREVISCAN [Suspect]
     Dosage: ALTERNATION OF ONE QUARTER OF TABLET PER DAY OR HALF A TABLET THE OTHER DAY
     Route: 048
     Dates: start: 20131015, end: 20131112
  4. PREVISCAN [Suspect]
     Dosage: ONE QUARTER OF A TABLET DAILY
     Route: 048
     Dates: start: 20131118
  5. PARACETAMOL [Concomitant]
     Indication: PAIN
     Dosage: 1 G, 3X/DAY, AS NEEDED
     Route: 048
     Dates: start: 20131112
  6. LEVOTHYROX [Concomitant]
     Dosage: 125 UG, DAILY
     Route: 048
  7. FUMAFER [Concomitant]
     Dosage: 66 MG, 2X/DAY
     Route: 048
  8. CORDARONE [Concomitant]
     Dosage: 200 MG, DAILY
     Route: 048
  9. AMLOR [Concomitant]
     Dosage: 5 MG, DAILY
     Route: 048
  10. APROVEL [Concomitant]
     Dosage: 300 MG, DAILY
     Route: 048
  11. CARDENSIEL [Concomitant]
     Dosage: 25 MG, DAILY
     Route: 048

REACTIONS (2)
  - Haemarthrosis [Recovered/Resolved]
  - Haemarthrosis [Recovering/Resolving]
